FAERS Safety Report 21767091 (Version 1)
Quarter: 2022Q4

REPORT INFORMATION
  Report Type: Spontaneous
  Country: CH (occurrence: CH)
  Receive Date: 20221222
  Receipt Date: 20221222
  Transmission Date: 20230113
  Serious: Yes (Hospitalization, Other)
  Sender: FDA-Public Use
  Company Number: CH-009507513-2212CHE007824

PATIENT
  Age: 63 Year
  Sex: Female

DRUGS (1)
  1. PEMBROLIZUMAB [Suspect]
     Active Substance: PEMBROLIZUMAB
     Indication: Small cell lung cancer metastatic
     Dosage: UNK

REACTIONS (4)
  - CNS ventriculitis [Unknown]
  - Immune-mediated encephalitis [Unknown]
  - Autoimmune colitis [Unknown]
  - Off label use [Unknown]
